FAERS Safety Report 16740599 (Version 1)
Quarter: 2019Q3

REPORT INFORMATION
  Report Type: Spontaneous
  Country: US (occurrence: US)
  Receive Date: 20190709
  Receipt Date: 20190709
  Transmission Date: 20191005
  Serious: Yes (Hospitalization)
  Sender: FDA-Public Use
  Company Number: None

PATIENT
  Age: 73 Year
  Sex: Male

DRUGS (11)
  1. NEXIUM CAP [Concomitant]
  2. TAMSULOSIN CAP [Concomitant]
     Active Substance: TAMSULOSIN
  3. DOFETILIDE. [Suspect]
     Active Substance: DOFETILIDE
     Indication: ATRIAL FIBRILLATION
     Route: 048
     Dates: start: 20190525
  4. DILTIAZEM CAP [Concomitant]
  5. SERTRALINE TAB [Concomitant]
     Active Substance: SERTRALINE HYDROCHLORIDE
  6. VALTREX TAB [Concomitant]
  7. ZYRTEC TAB [Concomitant]
  8. TRIAMCINOLON CRE [Concomitant]
  9. CELEBREX CAP [Concomitant]
  10. BONIVA TAB [Concomitant]
  11. METOPROL TAR TAB [Concomitant]

REACTIONS (1)
  - Hospitalisation [None]

NARRATIVE: CASE EVENT DATE: 20190703
